FAERS Safety Report 7854553-1 (Version None)
Quarter: 2011Q3

REPORT INFORMATION
  Report Type: 
  Country: None (occurrence: None)
  Receive Date: 20110916
  Receipt Date: 20110602
  Transmission Date: 20111222
  Serious: Yes (Other)
  Sender: FDA-Public Use
  Company Number: 2011SP025624

PATIENT
  Age: 29 Year
  Sex: Female

DRUGS (1)
  1. IMPLANON [Suspect]
     Indication: CONTRACEPTION
     Dates: start: 20080724

REACTIONS (5)
  - OVARIAN CYST [None]
  - HEADACHE [None]
  - NAUSEA [None]
  - MENSTRUATION IRREGULAR [None]
  - VAGINAL INFECTION [None]
